FAERS Safety Report 9945706 (Version 3)
Quarter: 2014Q1

REPORT INFORMATION
  Report Type: Spontaneous
  Country: US (occurrence: US)
  Receive Date: 20140303
  Receipt Date: 20140320
  Transmission Date: 20141002
  Serious: Yes (Other)
  Sender: FDA-Public Use
  Company Number: CHPA2014US003017

PATIENT
  Age: 60 Year
  Sex: Male

DRUGS (2)
  1. CONTROL PLP [Suspect]
     Indication: SMOKING CESSATION THERAPY
     Dosage: 21 MG, UNK
     Route: 062
     Dates: start: 20140214
  2. CONTROL PLP [Suspect]
     Indication: OFF LABEL USE

REACTIONS (3)
  - Feeling abnormal [Recovered/Resolved]
  - Inappropriate schedule of drug administration [Unknown]
  - Drug ineffective [Unknown]
